FAERS Safety Report 12723898 (Version 6)
Quarter: 2017Q1

REPORT INFORMATION
  Report Type: Spontaneous
  Country: GB (occurrence: GB)
  Receive Date: 20160908
  Receipt Date: 20170221
  Transmission Date: 20170428
  Serious: Yes (Death)
  Sender: FDA-Public Use
  Company Number: GB-MYLANLABS-2016M1038107

PATIENT

DRUGS (1)
  1. EPIPEN [Suspect]
     Active Substance: EPINEPHRINE
     Indication: ALLERGY TO ARTHROPOD STING
     Dosage: UNK
     Dates: start: 20151127, end: 20151127

REACTIONS (5)
  - Device breakage [Unknown]
  - Dyspnoea [Not Recovered/Not Resolved]
  - Device failure [Unknown]
  - Device malfunction [Unknown]
  - Allergy to arthropod sting [Fatal]

NARRATIVE: CASE EVENT DATE: 201511
